FAERS Safety Report 7103290-X (Version None)
Quarter: 2010Q4

REPORT INFORMATION
  Report Type: 
  Country: None (occurrence: None)
  Receive Date: 20101115
  Receipt Date: 20101104
  Transmission Date: 20110411
  Serious: Yes (Other)
  Sender: FDA-Public Use
  Company Number: US-BRISTOL-MYERS SQUIBB COMPANY-15363823

PATIENT
  Age: 14 Year
  Sex: Male

DRUGS (2)
  1. CEPHALEXIN [Suspect]
     Indication: PNEUMONITIS
     Dosage: ORAL DOSE OF 500 MG ON THE 23RD POSTOP DAY
     Route: 048
  2. AMPICILLIN [Concomitant]
     Indication: PNEUMONITIS

REACTIONS (1)
  - HAEMOLYTIC ANAEMIA [None]
